FAERS Safety Report 14166523 (Version 1)
Quarter: 2017Q4

REPORT INFORMATION
  Report Type: Spontaneous
  Country: US (occurrence: US)
  Receive Date: 20171107
  Receipt Date: 20171107
  Transmission Date: 20180321
  Serious: No
  Sender: FDA-Public Use
  Company Number: US-B.I. PHARMACEUTICALS,INC./RIDGEFIELD-2017-BI-059110

PATIENT
  Sex: Female

DRUGS (11)
  1. AZOPT 1% OPHTHALMIC SUSPENSION [Concomitant]
     Indication: PRODUCT USED FOR UNKNOWN INDICATION
     Dosage: 1 GTT BID;
     Route: 058
  2. SPIRIVA [Suspect]
     Active Substance: TIOTROPIUM BROMIDE MONOHYDRATE
     Indication: CHRONIC OBSTRUCTIVE PULMONARY DISEASE
     Dosage: 1 CAPSULE QD;  FORM STRENGTH: 18 MCG; FORMULATION: CAPSULE? ADMINISTRATION CORRECT? NR(NOT REPORTED)
     Route: 055
  3. HALOPERIDOL. [Concomitant]
     Active Substance: HALOPERIDOL
     Indication: PRODUCT USED FOR UNKNOWN INDICATION
     Dosage: BID;  FORM STRENGTH: 5MG
     Route: 048
  4. VOLTAREN 1% TRANSDERMAL GEL [Concomitant]
     Indication: PRODUCT USED FOR UNKNOWN INDICATION
     Dosage: 2 TO 4 GRAMS TO LOWER EXTREMITES QID;
     Route: 061
  5. IPRATROPIUM/ALBUTEROL NEBULIZER [Concomitant]
     Indication: PRODUCT USED FOR UNKNOWN INDICATION
     Dosage: 1 VIAL 4 TIMES PER DAY;
     Route: 055
  6. LISINOPRIL. [Concomitant]
     Active Substance: LISINOPRIL
     Indication: PRODUCT USED FOR UNKNOWN INDICATION
     Dosage: QD;  FORM STRENGTH: 10MG
     Route: 048
  7. MULTI VITAMIN [Concomitant]
     Active Substance: VITAMINS
     Indication: PRODUCT USED FOR UNKNOWN INDICATION
     Dosage: QD;
     Route: 048
  8. VALIUM [Concomitant]
     Active Substance: DIAZEPAM
     Indication: PRODUCT USED FOR UNKNOWN INDICATION
     Dosage: BID;  FORM STRENGTH: 5MG
     Route: 048
  9. BENZTROPINE [Concomitant]
     Active Substance: BENZTROPINE
     Indication: PRODUCT USED FOR UNKNOWN INDICATION
     Dosage: QD;  FORM STRENGTH: 2MG
     Route: 048
  10. LITHIUM CITRATE. [Concomitant]
     Active Substance: LITHIUM CITRATE
     Indication: PRODUCT USED FOR UNKNOWN INDICATION
     Dosage: 2 TEASPOONS BID;  FORM STRENGTH: 8MEQ/5ML
  11. VENTOLIN [Concomitant]
     Active Substance: ALBUTEROL SULFATE
     Indication: PRODUCT USED FOR UNKNOWN INDICATION
     Route: 055

REACTIONS (3)
  - Pneumonia [Unknown]
  - Blood glucose increased [Unknown]
  - Chronic obstructive pulmonary disease [Unknown]
